FAERS Safety Report 5150426-6 (Version None)
Quarter: 2006Q4

REPORT INFORMATION
  Report Type: 
  Country: None (occurrence: None)
  Receive Date: 20061109
  Receipt Date: 20061109
  Transmission Date: 20070319
  Serious: Yes (Other)
  Sender: FDA-Public Use
  Company Number: None

PATIENT
  Age: 41 Year
  Sex: Female
  Weight: 56.246 kg

DRUGS (1)
  1. EFFEXOR [Suspect]
     Indication: POSTPARTUM DEPRESSION
     Dosage: 75 MG 1 X PER DAY PO
     Route: 048
     Dates: start: 20010101, end: 20061108

REACTIONS (2)
  - DRUG WITHDRAWAL SYNDROME [None]
  - IMPAIRED WORK ABILITY [None]
